FAERS Safety Report 4747739-6 (Version None)
Quarter: 2005Q3

REPORT INFORMATION
  Report Type: 
  Country: None (occurrence: None)
  Receive Date: 20050817
  Receipt Date: 20050817
  Transmission Date: 20060218
  Serious: Yes (Life-Threatening)
  Sender: FDA-Public Use
  Company Number: None

PATIENT
  Sex: Female

DRUGS (5)
  1. RELAFEN [Suspect]
     Dosage: ORAL
     Route: 048
  2. CLARITIN [Concomitant]
  3. LISINOPRIL [Concomitant]
  4. RELAFEN [Concomitant]
  5. ATENOLOL [Concomitant]

REACTIONS (1)
  - STEVENS-JOHNSON SYNDROME [None]
